FAERS Safety Report 9324816 (Version 1)
Quarter: 2013Q2

REPORT INFORMATION
  Report Type: Spontaneous
  Country: US (occurrence: US)
  Receive Date: 20130603
  Receipt Date: 20130603
  Transmission Date: 20140414
  Serious: No
  Sender: FDA-Public Use
  Company Number: US-PFIZER INC-2012272237

PATIENT
  Age: 11 Year
  Sex: Male
  Weight: 27.2 kg

DRUGS (3)
  1. GENOTROPIN [Suspect]
     Indication: GROWTH HORMONE DEFICIENCY
     Dosage: 1.2 MG, 1X/DAY
     Dates: start: 2012
  2. GENOTROPIN [Suspect]
     Dosage: UNK
  3. VENTOLIN [Concomitant]
     Indication: ASTHMA
     Dosage: UNK, 4X/DAY

REACTIONS (1)
  - Injection site pain [Unknown]
